FAERS Safety Report 8309111-1 (Version None)
Quarter: 2012Q2

REPORT INFORMATION
  Report Type: 
  Country: None (occurrence: None)
  Receive Date: 20120424
  Receipt Date: 20120419
  Transmission Date: 20120825
  Serious: Yes (Other)
  Sender: FDA-Public Use
  Company Number: BR-ABBOTT-12P-020-0927961-00

PATIENT
  Sex: Female
  Weight: 74 kg

DRUGS (10)
  1. HUMIRA [Suspect]
     Indication: PSORIATIC ARTHROPATHY
     Route: 058
     Dates: start: 20101207, end: 20120101
  2. MESALAMINE [Concomitant]
     Indication: GASTROINTESTINAL DISORDER
     Dates: start: 20120101
  3. CALCIUM CARBONATE + VITAMIN D [Concomitant]
     Indication: OSTEOPOROSIS
     Route: 048
  4. OMEPRAZOLE [Concomitant]
     Indication: GASTRIC DISORDER
  5. OMEPRAZOLE [Concomitant]
     Route: 048
  6. AZATHIOPRINE [Concomitant]
     Indication: GASTROINTESTINAL DISORDER
     Route: 048
  7. ALENDRONATE SODIUM [Concomitant]
     Indication: OSTEOPOROSIS
     Route: 048
  8. CEPHALEXIN [Concomitant]
     Indication: SINUSITIS
     Route: 048
  9. FOLIC ACID [Concomitant]
     Indication: GASTROINTESTINAL DISORDER
     Route: 048
  10. ACETAMINOPHEN [Concomitant]
     Indication: ARTHRALGIA
     Route: 048

REACTIONS (9)
  - ABSCESS [None]
  - BACTERIAL INFECTION [None]
  - HYPERTENSION [None]
  - DIABETES MELLITUS [None]
  - NODULE [None]
  - PNEUMONIA [None]
  - SCLERITIS [None]
  - LYMPHOMA [None]
  - URINARY TRACT INFECTION [None]
